FAERS Safety Report 4334796-4 (Version None)
Quarter: 2004Q2

REPORT INFORMATION
  Report Type: 
  Country: None (occurrence: None)
  Receive Date: 20040407
  Receipt Date: 20040407
  Transmission Date: 20050107
  Serious: Yes (Death)
  Sender: FDA-Public Use
  Company Number: None

PATIENT
  Age: 60 Year
  Sex: Female

DRUGS (12)
  1. HEPARIN [Suspect]
     Indication: DEEP VEIN THROMBOSIS
     Dosage: CONT. IV INFUSION
     Route: 042
     Dates: start: 20031014, end: 20031108
  2. LEVOTHYROXINE SODIUM [Concomitant]
  3. HYDROMORPHONE [Concomitant]
  4. ACETAMINOPHEN [Concomitant]
  5. ENALAPRIL MALEATE [Concomitant]
  6. LORAZEPAM [Concomitant]
  7. RANITIDINE [Concomitant]
  8. METRONIDAZOLE [Concomitant]
  9. CEFEPIME [Concomitant]
  10. VANCOMYCIN [Concomitant]
  11. CLONIDINE [Concomitant]
  12. ALBUTEROL [Concomitant]

REACTIONS (2)
  - ACTIVATED PARTIAL THROMBOPLASTIN TIME SHORTENED [None]
  - HAEMORRHAGIC STROKE [None]
